FAERS Safety Report 6429576-X (Version None)
Quarter: 2009Q4

REPORT INFORMATION
  Report Type: 
  Country: None (occurrence: None)
  Receive Date: 20091103
  Receipt Date: 20091019
  Transmission Date: 20100525
  Serious: Yes (Death, Hospitalization)
  Sender: FDA-Public Use
  Company Number: 2009AC000286

PATIENT
  Age: 66 Year
  Sex: Male

DRUGS (9)
  1. DIGOXIN [Suspect]
     Dosage: 0.25 MG;QD;PO
     Route: 048
  2. AMIODARONE HCL [Concomitant]
  3. ASPIRIN [Concomitant]
  4. VASOTEC [Concomitant]
  5. LASIX [Concomitant]
  6. ZOCOR [Concomitant]
  7. PREVACID [Concomitant]
  8. PAMELOR [Concomitant]
  9. ALDACTONE [Concomitant]

REACTIONS (17)
  - ANXIETY [None]
  - AORTIC VALVE INCOMPETENCE [None]
  - ATRIAL FIBRILLATION [None]
  - CARDIAC FAILURE CONGESTIVE [None]
  - CARDIOACTIVE DRUG LEVEL INCREASED [None]
  - CHRONIC OBSTRUCTIVE PULMONARY DISEASE [None]
  - CONFUSIONAL STATE [None]
  - DYSPNOEA [None]
  - ECONOMIC PROBLEM [None]
  - HYPOXIA [None]
  - ILEUS [None]
  - MITRAL VALVE INCOMPETENCE [None]
  - MULTIPLE INJURIES [None]
  - OEDEMA [None]
  - PULMONARY OEDEMA [None]
  - SURGERY [None]
  - THERAPEUTIC AGENT TOXICITY [None]
